FAERS Safety Report 25161674 (Version 2)
Quarter: 2025Q3

REPORT INFORMATION
  Report Type: Spontaneous
  Country: EU (occurrence: EU)
  Receive Date: 20250404
  Receipt Date: 20250809
  Transmission Date: 20251020
  Serious: Yes (Other)
  Sender: ALEXION PHARMACEUTICALS
  Company Number: EU-SA-2025SA027006

PATIENT
  Age: 11 Month
  Sex: Male
  Weight: 9 kg

DRUGS (3)
  1. BEYFORTUS [Suspect]
     Active Substance: NIRSEVIMAB-ALIP
     Indication: Respiratory syncytial virus bronchiolitis
     Route: 065
     Dates: start: 20240119, end: 20240119
  2. BEYFORTUS [Suspect]
     Active Substance: NIRSEVIMAB-ALIP
     Route: 065
     Dates: start: 20241025, end: 20241025
  3. BEYFORTUS [Suspect]
     Active Substance: NIRSEVIMAB-ALIP
     Route: 065
     Dates: start: 20240119, end: 20240119

REACTIONS (2)
  - Respiratory syncytial virus bronchiolitis [Unknown]
  - Drug ineffective [Unknown]

NARRATIVE: CASE EVENT DATE: 20241218
